FAERS Safety Report 18852697 (Version 2)
Quarter: 2021Q1

REPORT INFORMATION
  Report Type: Report from Study
  Country: MY (occurrence: MY)
  Receive Date: 20210205
  Receipt Date: 20210212
  Transmission Date: 20210420
  Serious: Yes (Death, Hospitalization)
  Sender: FDA-Public Use
  Company Number: NVSC2021MY024681

PATIENT
  Age: 53 Year
  Sex: Female
  Weight: 60.9 kg

DRUGS (2)
  1. MEKINIST [Suspect]
     Active Substance: TRAMETINIB DIMETHYL SULFOXIDE
     Indication: NON-SMALL CELL LUNG CANCER
     Dosage: 2 MG
     Route: 065
     Dates: start: 20201024, end: 20210126
  2. DABRAFENIB [Suspect]
     Active Substance: DABRAFENIB
     Indication: NON-SMALL CELL LUNG CANCER
     Dosage: 150 MG, BID
     Route: 048
     Dates: start: 20201024, end: 20210126

REACTIONS (3)
  - Death [Fatal]
  - Atrial flutter [Unknown]
  - Effusion [Unknown]

NARRATIVE: CASE EVENT DATE: 20210126
